FAERS Safety Report 9003571 (Version 6)
Quarter: 2014Q2

REPORT INFORMATION
  Report Type: Report from Study
  Country: JP (occurrence: JP)
  Receive Date: 20130108
  Receipt Date: 20140414
  Transmission Date: 20141212
  Serious: Yes (Hospitalization, Other)
  Sender: FDA-Public Use
  Company Number: JP-AMGEN-JPNCT2012084417

PATIENT
  Age: 89 Year
  Sex: Male
  Weight: 54 kg

DRUGS (19)
  1. DARBEPOETIN ALFA [Suspect]
     Indication: NEPHROGENIC ANAEMIA
     Dosage: 60 MUG, UNK
     Route: 040
     Dates: start: 20110826
  2. CRAVIT [Concomitant]
     Indication: PYREXIA
     Dosage: UNK
     Route: 048
     Dates: start: 20120228, end: 20120306
  3. ADALAT CR [Concomitant]
     Dosage: UNK
     Route: 048
  4. IRBETAN [Concomitant]
     Indication: NEPHROSCLEROSIS
     Dosage: UNK
     Route: 048
  5. LUPRAC [Concomitant]
     Indication: NEPHROSCLEROSIS
     Dosage: UNK
     Route: 048
  6. ENTERONON-R [Concomitant]
     Dosage: UNK
     Route: 048
  7. BIO-THREE [Concomitant]
     Dosage: UNK
     Route: 048
  8. GASTROM [Concomitant]
     Dosage: UNK
     Route: 048
  9. HOKUNALIN [Concomitant]
     Dosage: UNK
     Route: 061
  10. FRANDOL S [Concomitant]
     Dosage: UNK
     Route: 061
  11. OMEPRAL [Concomitant]
     Dosage: UNK
     Route: 048
  12. FASTIC [Concomitant]
     Dosage: UNK
     Route: 048
  13. BISACODYL [Concomitant]
     Dosage: UNK
     Route: 054
  14. AVOLVE [Concomitant]
     Dosage: UNK
     Route: 048
  15. URIEF [Concomitant]
     Dosage: UNK
     Route: 048
  16. GRAMALIL [Concomitant]
     Dosage: UNK
     Route: 048
  17. FERROMIA [Concomitant]
     Dosage: UNK
     Route: 048
  18. FUROSEMIDE [Concomitant]
     Dosage: UNK
     Route: 048
  19. RIKKUNSHITO                        /08041001/ [Concomitant]
     Dosage: UNK
     Route: 048

REACTIONS (13)
  - Liver disorder [Recovering/Resolving]
  - Weight decreased [Recovering/Resolving]
  - Occult blood positive [Unknown]
  - Lymphoma [Unknown]
  - Anaemia [Recovering/Resolving]
  - Anaemia [Recovering/Resolving]
  - Cellulitis [Recovered/Resolved]
  - Vitamin C deficiency [Unknown]
  - Cardiac failure [Recovering/Resolving]
  - Pneumonia mycoplasmal [Recovered/Resolved]
  - Dyspepsia [Recovering/Resolving]
  - Eczema asteatotic [Recovering/Resolving]
  - Pyrexia [Recovered/Resolved]
